FAERS Safety Report 5646208-9 (Version None)
Quarter: 2008Q1

REPORT INFORMATION
  Report Type: 
  Country: None (occurrence: None)
  Receive Date: 20080227
  Receipt Date: 20080212
  Transmission Date: 20080703
  Serious: Yes (Hospitalization)
  Sender: FDA-Public Use
  Company Number: S08-FRA-00685-01

PATIENT
  Age: 33 Year
  Sex: Female

DRUGS (2)
  1. CITALOPRAM HYDROBROMIDE [Suspect]
     Dosage: 200 MG ONCE PO
     Route: 048
     Dates: start: 20071107, end: 20071107
  2. ZOLPIDEM [Suspect]
     Dosage: 100 MG ONCE PO
     Route: 048
     Dates: start: 20071107, end: 20071107

REACTIONS (5)
  - COMA [None]
  - INTENTIONAL OVERDOSE [None]
  - MYDRIASIS [None]
  - NEUROLOGICAL SYMPTOM [None]
  - RESPIRATORY DEPRESSION [None]
